FAERS Safety Report 9004561 (Version 1)
Quarter: 2013Q1

REPORT INFORMATION
  Report Type: Spontaneous
  Country: US (occurrence: None)
  Receive Date: 20130103
  Receipt Date: 20130103
  Transmission Date: 20140127
  Serious: Yes (Other)
  Sender: FDA-Public Use
  Company Number: None

PATIENT
  Age: 64 Year
  Sex: Female
  Weight: 60.78 kg

DRUGS (2)
  1. ZOSTAVAX [Suspect]
     Indication: HERPES ZOSTER
     Dosage: 0..65ML 1 SQ
     Route: 058
     Dates: start: 20121228, end: 20121228
  2. ZOSTAVAX [Suspect]
     Indication: PROPHYLAXIS
     Dosage: 0..65ML 1 SQ
     Route: 058
     Dates: start: 20121228, end: 20121228

REACTIONS (5)
  - Injection site swelling [None]
  - Pain in extremity [None]
  - Injection site pain [None]
  - Injection site pruritus [None]
  - Injection site urticaria [None]
